FAERS Safety Report 7902736-4 (Version None)
Quarter: 2011Q4

REPORT INFORMATION
  Report Type: 
  Country: None (occurrence: None)
  Receive Date: 20111109
  Receipt Date: 20111028
  Transmission Date: 20120403
  Serious: Yes (Other)
  Sender: FDA-Public Use
  Company Number: US-BIOGENIDEC-2011BI008725

PATIENT
  Age: 33 Year
  Sex: Female

DRUGS (3)
  1. TYSABRI [Suspect]
     Indication: MULTIPLE SCLEROSIS
     Route: 042
     Dates: start: 20100824, end: 20110118
  2. MULTI-VITAMINS [Concomitant]
  3. SLOW IRON [Concomitant]
     Dates: start: 20110701

REACTIONS (2)
  - CEPHALO-PELVIC DISPROPORTION [None]
  - PREGNANCY [None]
